FAERS Safety Report 11420275 (Version 2)
Quarter: 2015Q4

REPORT INFORMATION
  Report Type: Report from Study
  Country: JP (occurrence: JP)
  Receive Date: 20150826
  Receipt Date: 20151103
  Transmission Date: 20160304
  Serious: Yes (Hospitalization)
  Sender: FDA-Public Use
  Company Number: JP-ACTELION-A-CH2015-122903

PATIENT
  Age: 30 Year
  Sex: Female

DRUGS (10)
  1. THIAMINE DISULFIDE PHOS. W/VIT B6/VIT B12 NOS [Concomitant]
  2. ASCORBIC ACID. [Concomitant]
     Active Substance: ASCORBIC ACID
  3. ZAVESCA [Suspect]
     Active Substance: MIGLUSTAT
     Indication: NIEMANN-PICK DISEASE
     Dosage: 200 MG, TID
     Route: 048
     Dates: start: 20150528
  4. RINGER^S SOLUTION [Concomitant]
     Active Substance: RINGER^S SOLUTION
  5. RANITIDINE [Concomitant]
     Active Substance: RANITIDINE\RANITIDINE HYDROCHLORIDE
  6. TULOBUTEROL [Suspect]
     Active Substance: TULOBUTEROL
     Indication: PRODUCT USED FOR UNKNOWN INDICATION
     Route: 062
  7. CLOSTRIDIUM BUTYRICUM [Concomitant]
     Active Substance: CLOSTRIDIUM BUTYRICUM SPORES STRAIN M-55
  8. AMINO ACIDS NOS W/CALCIUM CHLORIDE/ELECTROLYT [Concomitant]
     Dosage: UNK
  9. DEXAMETHASONE. [Suspect]
     Active Substance: DEXAMETHASONE
     Indication: PRODUCT USED FOR UNKNOWN INDICATION
     Route: 049
  10. BROMHEXIN [Concomitant]
     Active Substance: BROMHEXINE

REACTIONS (4)
  - Pneumonia aspiration [Recovering/Resolving]
  - Hypoxia [Recovering/Resolving]
  - Cough [Recovering/Resolving]
  - Pyrexia [Recovering/Resolving]

NARRATIVE: CASE EVENT DATE: 20150806
